FAERS Safety Report 4759849-8 (Version None)
Quarter: 2005Q3

REPORT INFORMATION
  Report Type: 
  Country: None (occurrence: None)
  Receive Date: 20050831
  Receipt Date: 20050817
  Transmission Date: 20060218
  Serious: Yes (Hospitalization, Other)
  Sender: FDA-Public Use
  Company Number: USA0508105718

PATIENT
  Age: 53 Year
  Sex: Female
  Weight: 139 kg

DRUGS (6)
  1. HUMULIN 70/30 [Suspect]
     Indication: DIABETES MELLITUS
     Dosage: 290 U DAY
     Dates: start: 19940101
  2. HUMULIN R [Suspect]
     Indication: DIABETES MELLITUS
     Dates: start: 20011001
  3. GLUCOPHAGE [Concomitant]
  4. LISINOPRIL [Concomitant]
  5. EFFEXOR [Concomitant]
  6. ASPIRIN [Concomitant]

REACTIONS (7)
  - BLOOD CHOLESTEROL INCREASED [None]
  - BLOOD GLUCOSE INCREASED [None]
  - CELLULITIS [None]
  - CONDITION AGGRAVATED [None]
  - DIVERTICULITIS [None]
  - HYPOAESTHESIA [None]
  - NEUROPATHY [None]
